FAERS Safety Report 17463473 (Version 1)
Quarter: 2020Q1

REPORT INFORMATION
  Report Type: Spontaneous
  Country: SE (occurrence: SE)
  Receive Date: 20200226
  Receipt Date: 20200226
  Transmission Date: 20200409
  Serious: Yes (Hospitalization)
  Sender: FDA-Public Use
  Company Number: NVSC2020SE047036

PATIENT
  Sex: Female

DRUGS (3)
  1. ATARAX [Suspect]
     Active Substance: HYDROXYZINE HYDROCHLORIDE
     Indication: PRODUCT USED FOR UNKNOWN INDICATION
     Dosage: UNK (200-300 MG B?RJAT IMORSE OCH KL 12 ELLER SENARE)
     Route: 048
     Dates: start: 20181013, end: 20181013
  2. ENALAPRIL [Suspect]
     Active Substance: ENALAPRIL
     Indication: PRODUCT USED FOR UNKNOWN INDICATION
     Dosage: UNK (400 MILLIGRAM B?RJAT IMORSE OCH KL 12 ELLER SENARE)
     Route: 048
     Dates: start: 20181013, end: 20181013
  3. PROPAVAN [Suspect]
     Active Substance: PROPIOMAZINE
     Indication: PRODUCT USED FOR UNKNOWN INDICATION
     Dosage: UNK (1,2 GRAM B?RJAT IMORSE OCH KL 12 ELLER SENARE)
     Route: 048
     Dates: start: 20181013, end: 20181013

REACTIONS (5)
  - Vomiting [Unknown]
  - Intentional overdose [Unknown]
  - Intentional self-injury [Unknown]
  - Depressed level of consciousness [Unknown]
  - Feeling drunk [Unknown]

NARRATIVE: CASE EVENT DATE: 20181013
